FAERS Safety Report 7800555 (Version 3)
Quarter: 2013Q2

REPORT INFORMATION
  Report Type: Spontaneous
  Country: US (occurrence: US)
  Receive Date: 20110204
  Receipt Date: 20130501
  Transmission Date: 20140414
  Serious: Yes (Hospitalization, Other)
  Sender: FDA-Public Use
  Company Number: US-ASTRAZENECA-2010SE14662

PATIENT
  Age: 86 Year
  Sex: Female
  Weight: 68.9 kg

DRUGS (9)
  1. FASLODEX [Suspect]
     Indication: BREAST CANCER FEMALE
     Route: 030
     Dates: start: 200708, end: 201011
  2. FASLODEX [Suspect]
     Indication: BREAST CANCER FEMALE
     Route: 030
  3. LISINOPRIL [Concomitant]
     Indication: HYPERTENSION
     Route: 048
  4. HCTZ [Concomitant]
     Indication: HYPERTENSION
     Dosage: DAILY
     Route: 048
  5. ZOMETA [Concomitant]
     Indication: BONE DENSITY ABNORMAL
  6. ZOMETA [Concomitant]
     Indication: NEOPLASM MALIGNANT
  7. ZOMETA [Concomitant]
     Indication: BONE DENSITY ABNORMAL
  8. ZOMETA [Concomitant]
     Indication: NEOPLASM MALIGNANT
  9. SOLATOL [Concomitant]
     Indication: HEART RATE ABNORMAL

REACTIONS (16)
  - Heart rate decreased [Unknown]
  - Hip fracture [Unknown]
  - X-ray of pelvis and hip abnormal [Unknown]
  - Arthritis [Unknown]
  - Osteoarthritis [Not Recovered/Not Resolved]
  - Arthralgia [Unknown]
  - Arthralgia [Unknown]
  - Arthralgia [Unknown]
  - Bone pain [Recovered/Resolved]
  - Myalgia [Recovered/Resolved]
  - Influenza like illness [Unknown]
  - Burning sensation [Unknown]
  - Burning sensation [Unknown]
  - Fall [Unknown]
  - Gait disturbance [Unknown]
  - Adverse event [Unknown]
